FAERS Safety Report 21189996 (Version 7)
Quarter: 2025Q3

REPORT INFORMATION
  Report Type: Report from Study
  Country: CA (occurrence: CA)
  Receive Date: 20220809
  Receipt Date: 20250721
  Transmission Date: 20251020
  Serious: Yes (Hospitalization, Other)
  Sender: TAKEDA
  Company Number: CA-TAKEDA-2022TUS053740

PATIENT
  Age: 30 Year
  Sex: Female
  Weight: 49.887 kg

DRUGS (3)
  1. VEDOLIZUMAB [Suspect]
     Active Substance: VEDOLIZUMAB
     Indication: Crohn^s disease
  2. VEDOLIZUMAB [Suspect]
     Active Substance: VEDOLIZUMAB
  3. VEDOLIZUMAB [Suspect]
     Active Substance: VEDOLIZUMAB
     Dosage: 300 MILLIGRAM, Q4WEEKS
     Dates: start: 20221103

REACTIONS (5)
  - Crohn^s disease [Unknown]
  - Impaired gastric emptying [Unknown]
  - Off label use [Unknown]
  - Impaired work ability [Unknown]
  - Social problem [Unknown]

NARRATIVE: CASE EVENT DATE: 20221103
